FAERS Safety Report 25647585 (Version 1)
Quarter: 2025Q3

REPORT INFORMATION
  Report Type: Spontaneous
  Country: US (occurrence: US)
  Receive Date: 20250806
  Receipt Date: 20250806
  Transmission Date: 20251021
  Serious: Yes (Hospitalization)
  Sender: ROCHE
  Company Number: US-ROCHE-10000354505

PATIENT
  Sex: Female

DRUGS (10)
  1. XOLAIR PFS [Suspect]
     Active Substance: OMALIZUMAB
     Indication: Idiopathic urticaria
     Dosage: STRENGTH:150 MG/ML
     Route: 058
     Dates: start: 202304
  2. XOLAIR PFS [Suspect]
     Active Substance: OMALIZUMAB
  3. sodium chlor posiflush (10 ml) [Concomitant]
  4. DIPHENHYDRAMINE [Concomitant]
     Active Substance: DIPHENHYDRAMINE
  5. Acetaminophen SDV [Concomitant]
  6. Normal saline flush (5ml) [Concomitant]
  7. EPINEPHRINE [Concomitant]
     Active Substance: EPINEPHRINE
  8. KETOROLAC TROMETHAMINE [Concomitant]
     Active Substance: KETOROLAC TROMETHAMINE
  9. Heparin L/L flush syr (5ml) [Concomitant]
  10. Gamunex C 10 % SDV (5gm/50ml) [Concomitant]
     Indication: Chronic inflammatory demyelinating polyradiculoneuropathy

REACTIONS (1)
  - Stoma prolapse [Unknown]
